FAERS Safety Report 10229355 (Version 2)
Quarter: 2014Q2

REPORT INFORMATION
  Report Type: Spontaneous
  Country: CA (occurrence: CA)
  Receive Date: 20140611
  Receipt Date: 20140620
  Transmission Date: 20141212
  Serious: Yes (Other)
  Sender: FDA-Public Use
  Company Number: CA-PFIZER INC-2014154078

PATIENT
  Sex: Female

DRUGS (6)
  1. SALAZOPYRIN [Suspect]
     Dosage: UNK
     Dates: start: 1992, end: 2001
  2. SALAZOPYRIN [Suspect]
     Dosage: UNK
     Dates: start: 201206, end: 201207
  3. METHOTREXATE SODIUM [Suspect]
     Dosage: UNK
     Dates: start: 1997, end: 2001
  4. METHOTREXATE SODIUM [Suspect]
     Dosage: UNK
     Dates: start: 201105, end: 201207
  5. ENBREL [Suspect]
     Dosage: UNK
  6. ACTEMRA [Suspect]
     Dosage: UNK
     Dates: start: 201106, end: 201206

REACTIONS (3)
  - Malignant melanoma [Recovered/Resolved]
  - Musculoskeletal disorder [Unknown]
  - Drug ineffective [Unknown]
